FAERS Safety Report 10213762 (Version 1)
Quarter: 2014Q2

REPORT INFORMATION
  Report Type: Spontaneous
  Country: SE (occurrence: SE)
  Receive Date: 20140603
  Receipt Date: 20140603
  Transmission Date: 20141212
  Serious: Yes (Other)
  Sender: FDA-Public Use
  Company Number: SE-ASTELLAS-2014EU006598

PATIENT
  Sex: Male

DRUGS (1)
  1. BETMIGA [Suspect]
     Indication: URGE INCONTINENCE
     Route: 048

REACTIONS (1)
  - Hallucination [Recovered/Resolved]
